FAERS Safety Report 19297651 (Version 1)
Quarter: 2021Q2

REPORT INFORMATION
  Report Type: Spontaneous
  Country: CA (occurrence: CA)
  Receive Date: 20210524
  Receipt Date: 20210524
  Transmission Date: 20210717
  Serious: Yes (Life-Threatening, Other)
  Sender: FDA-Public Use
  Company Number: CA-ASTRAZENECA-2021A451144

PATIENT
  Age: 61 Year
  Sex: Male
  Weight: 76 kg

DRUGS (3)
  1. ADALAT XL ? SRT [Concomitant]
     Route: 065
  2. SEROQUEL [Suspect]
     Active Substance: QUETIAPINE FUMARATE
     Indication: MANIA
     Dosage: 150 MG/ONCE
     Route: 048
  3. TAMSULOSIN [Concomitant]
     Active Substance: TAMSULOSIN

REACTIONS (4)
  - Intentional self-injury [Recovered/Resolved]
  - Suicidal ideation [Recovered/Resolved]
  - Panic reaction [Recovered/Resolved]
  - Psychiatric symptom [Recovered/Resolved]
